FAERS Safety Report 6449276-X (Version None)
Quarter: 2009Q4

REPORT INFORMATION
  Report Type: 
  Country: None (occurrence: None)
  Receive Date: 20091120
  Receipt Date: 20091110
  Transmission Date: 20100525
  Serious: Yes (Hospitalization)
  Sender: FDA-Public Use
  Company Number: US-JNJFOC-20091007954

PATIENT
  Sex: Male
  Weight: 40.3 kg

DRUGS (20)
  1. INFLIXIMAB [Suspect]
     Indication: INFLAMMATORY BOWEL DISEASE
     Route: 042
     Dates: end: 20090723
  2. HUMIRA [Concomitant]
  3. PROBIOTICS [Concomitant]
  4. GROWTH HORMONE [Concomitant]
  5. PRILOSEC [Concomitant]
  6. PREDNISONE [Concomitant]
  7. 5-AMINOSALICYLIC ACID [Concomitant]
     Route: 054
  8. OMEPRAZOLE [Concomitant]
  9. CALCIUM CARBONATE VITAMIN D [Concomitant]
  10. BENZOYL PEROXIDE [Concomitant]
  11. BENZACLIN [Concomitant]
  12. FERROUS SULFATE TAB [Concomitant]
  13. ADAPALENE [Concomitant]
  14. LEVOTHYROXINE SODIUM [Concomitant]
  15. ANTIBIOTIC [Concomitant]
     Indication: IRRITABLE BOWEL SYNDROME
  16. LETROZOLE [Concomitant]
  17. EPINEPHRINE [Concomitant]
  18. MULTI-VITAMINS [Concomitant]
  19. MERCAPTOPURINE [Concomitant]
  20. MINOCYCLIN [Concomitant]

REACTIONS (1)
  - CROHN'S DISEASE [None]
